FAERS Safety Report 15230649 (Version 1)
Quarter: 2018Q3

REPORT INFORMATION
  Report Type: Spontaneous
  Country: US (occurrence: US)
  Receive Date: 20180802
  Receipt Date: 20180802
  Transmission Date: 20181010
  Serious: No
  Sender: FDA-Public Use
  Company Number: US-SA-2017SA253542

PATIENT
  Sex: Female

DRUGS (7)
  1. ROSUVASTATIN CALCIUM. [Concomitant]
     Active Substance: ROSUVASTATIN CALCIUM
  2. AMLODIPINE BESYLATE. [Concomitant]
     Active Substance: AMLODIPINE BESYLATE
  3. TIZANIDINE. [Concomitant]
     Active Substance: TIZANIDINE
  4. IBUPROFEN. [Concomitant]
     Active Substance: IBUPROFEN
  5. ESCITALOPRAM [Concomitant]
     Active Substance: ESCITALOPRAM OXALATE
  6. LEXAPRO [Concomitant]
     Active Substance: ESCITALOPRAM OXALATE
  7. AUBAGIO [Suspect]
     Active Substance: TERIFLUNOMIDE
     Indication: MULTIPLE SCLEROSIS
     Dosage: 14 MG,UNK
     Route: 048
     Dates: start: 201709

REACTIONS (6)
  - Decreased interest [Unknown]
  - Blood pressure increased [Unknown]
  - Incontinence [Unknown]
  - Anhedonia [Unknown]
  - Stress [Unknown]
  - Depression [Unknown]
